FAERS Safety Report 7463418-9 (Version None)
Quarter: 2011Q2

REPORT INFORMATION
  Report Type: 
  Country: None (occurrence: None)
  Receive Date: 20110506
  Receipt Date: 20110427
  Transmission Date: 20111010
  Serious: Yes (Hospitalization, Other)
  Sender: FDA-Public Use
  Company Number: B0702445A

PATIENT
  Sex: Male

DRUGS (4)
  1. GLICLAZIDE [Concomitant]
     Indication: DIABETES MELLITUS
     Dosage: 80G TWICE PER DAY
     Route: 048
     Dates: start: 20110101
  2. TRAMADOL [Concomitant]
     Indication: BACK PAIN
     Route: 048
     Dates: start: 20090701
  3. SUMATRIPTAN SUCCINATE [Suspect]
     Indication: MIGRAINE
     Route: 048
  4. ALBUTEROL SULFATE AUTOHALER [Concomitant]
     Indication: ASTHMA
     Dates: start: 20091001

REACTIONS (3)
  - LOSS OF CONSCIOUSNESS [None]
  - OFF LABEL USE [None]
  - EPILEPSY [None]
